FAERS Safety Report 9212949 (Version 1)
Quarter: 2013Q2

REPORT INFORMATION
  Report Type: Spontaneous
  Country: US (occurrence: US)
  Receive Date: 20130405
  Receipt Date: 20130405
  Transmission Date: 20140414
  Serious: Yes (Other)
  Sender: FDA-Public Use
  Company Number: US-JNJFOC-20130213804

PATIENT
  Age: 54 Year
  Sex: Female

DRUGS (6)
  1. REMICADE [Suspect]
     Indication: CROHN^S DISEASE
     Route: 042
     Dates: start: 20121101
  2. REMICADE [Suspect]
     Indication: CROHN^S DISEASE
     Route: 042
     Dates: start: 20121128, end: 201302
  3. REMICADE [Suspect]
     Indication: CROHN^S DISEASE
     Route: 042
     Dates: start: 20121017
  4. FLAGYL [Concomitant]
     Indication: CROHN^S DISEASE
     Route: 065
     Dates: start: 201211
  5. ESTRADIOL [Concomitant]
     Indication: MENOPAUSE
     Route: 065
     Dates: start: 201301
  6. MERCAPTOPURINE [Concomitant]
     Indication: CROHN^S DISEASE
     Route: 048
     Dates: start: 201301

REACTIONS (1)
  - Optic ischaemic neuropathy [Recovering/Resolving]
